FAERS Safety Report 18700359 (Version 1)
Quarter: 2021Q1

REPORT INFORMATION
  Report Type: Report from Study
  Country: MX (occurrence: MX)
  Receive Date: 20210105
  Receipt Date: 20210105
  Transmission Date: 20210419
  Serious: Yes (Other)
  Sender: FDA-Public Use
  Company Number: NVSC2020MX344392

PATIENT
  Age: 49 Year
  Sex: Male
  Weight: 92 kg

DRUGS (4)
  1. CORTISONE [Suspect]
     Active Substance: CORTISONE
     Dosage: 20 MG, QD (WAS DECREASED EVERY WEEK UNTIL REACHING THE CORTISONE 20MG)
     Route: 065
  2. REVOLADE [Suspect]
     Active Substance: ELTROMBOPAG OLAMINE
     Indication: PLATELET COUNT INCREASED
     Dosage: 25 MG, QD
     Route: 048
     Dates: start: 201910, end: 20201111
  3. REVOLADE [Suspect]
     Active Substance: ELTROMBOPAG OLAMINE
     Dosage: 50 MG
     Route: 065
  4. CORTISONE [Suspect]
     Active Substance: CORTISONE
     Indication: PRODUCT USED FOR UNKNOWN INDICATION
     Dosage: 100 MG (STARTED THE TREATMENT 1 MONTH AND A HALF AGO)
     Route: 065

REACTIONS (7)
  - Muscle spasms [Unknown]
  - Cushing^s syndrome [Unknown]
  - Chills [Unknown]
  - Pallor [Unknown]
  - Platelet count decreased [Unknown]
  - Palpitations [Unknown]
  - Product use in unapproved indication [Unknown]

NARRATIVE: CASE EVENT DATE: 202009
